FAERS Safety Report 7407566-8 (Version None)
Quarter: 2011Q2

REPORT INFORMATION
  Report Type: 
  Country: None (occurrence: None)
  Receive Date: 20110406
  Receipt Date: 20110406
  Transmission Date: 20111010
  Serious: Yes (Hospitalization)
  Sender: FDA-Public Use
  Company Number: None

PATIENT
  Age: 62 Year
  Sex: Male
  Weight: 102.1 kg

DRUGS (1)
  1. HYDROCHLOROTHIAZIDE [Suspect]
     Indication: PANCREATITIS
     Dosage: 25MG EVERY DAY PO
     Route: 048
     Dates: start: 20101018, end: 20101109

REACTIONS (1)
  - PANCREATITIS [None]
